FAERS Safety Report 14301561 (Version 12)
Quarter: 2024Q2

REPORT INFORMATION
  Report Type: Spontaneous
  Country: US (occurrence: US)
  Receive Date: 20171219
  Receipt Date: 20240416
  Transmission Date: 20240715
  Serious: Yes (Other)
  Sender: FDA-Public Use
  Company Number: US-PFIZER INC-2017535123

PATIENT
  Age: 58 Year
  Sex: Female
  Weight: 68.04 kg

DRUGS (3)
  1. XELJANZ XR [Suspect]
     Active Substance: TOFACITINIB CITRATE
     Indication: Rheumatoid arthritis
     Dosage: 100 MG, ONCE A DAY
     Route: 065
     Dates: start: 2014
  2. XELJANZ XR [Suspect]
     Active Substance: TOFACITINIB CITRATE
     Dosage: 11 MG, ONCE A DAY (EVERY MORNING)
     Route: 048
     Dates: start: 201704
  3. MELOXICAM [Concomitant]
     Active Substance: MELOXICAM
     Indication: Arthralgia
     Dosage: 7.5 MG, ONCE DAILY
     Dates: start: 2004

REACTIONS (7)
  - Rheumatoid arthritis [Not Recovered/Not Resolved]
  - Deafness [Not Recovered/Not Resolved]
  - Overdose [Unknown]
  - Malaise [Not Recovered/Not Resolved]
  - Gait disturbance [Unknown]
  - Dysphonia [Unknown]
  - Eye disorder [Unknown]

NARRATIVE: CASE EVENT DATE: 20140101
